FAERS Safety Report 9187277 (Version 2)
Quarter: 2013Q2

REPORT INFORMATION
  Report Type: Spontaneous
  Country: US (occurrence: US)
  Receive Date: 20130325
  Receipt Date: 20130425
  Transmission Date: 20140414
  Serious: Yes (Hospitalization, Other)
  Sender: FDA-Public Use
  Company Number: US-BAYER-2013-035022

PATIENT
  Age: 31 Year
  Sex: Female
  Weight: 94.79 kg

DRUGS (4)
  1. YASMIN [Suspect]
     Dosage: UNK
     Dates: start: 2005, end: 200908
  2. OCELLA [Suspect]
  3. MUCINEX [Concomitant]
  4. ADVIL [Concomitant]
     Dosage: UNK, PRN

REACTIONS (9)
  - Pulmonary embolism [None]
  - Cerebrovascular accident [None]
  - Thrombosis [None]
  - Injury [None]
  - Pain [None]
  - Emotional distress [None]
  - General physical health deterioration [None]
  - Anxiety [None]
  - Pain [None]
